FAERS Safety Report 26105359 (Version 1)
Quarter: 2025Q4

REPORT INFORMATION
  Report Type: Spontaneous
  Country: CN (occurrence: CN)
  Receive Date: 20251201
  Receipt Date: 20251201
  Transmission Date: 20260118
  Serious: Yes (Other)
  Sender: BEIGENE
  Company Number: CN-BEONEMEDICINES-BGN-2025-020738

PATIENT
  Age: 57 Year
  Sex: Male

DRUGS (16)
  1. TISLELIZUMAB [Suspect]
     Active Substance: TISLELIZUMAB
     Indication: Nonkeratinising carcinoma of nasopharynx
     Dosage: 200 MILLIGRAM
     Dates: start: 20251105, end: 20251112
  2. TISLELIZUMAB [Suspect]
     Active Substance: TISLELIZUMAB
     Dosage: 200 MILLIGRAM
     Route: 041
     Dates: start: 20251105, end: 20251112
  3. TISLELIZUMAB [Suspect]
     Active Substance: TISLELIZUMAB
     Dosage: 200 MILLIGRAM
     Route: 041
     Dates: start: 20251105, end: 20251112
  4. TISLELIZUMAB [Suspect]
     Active Substance: TISLELIZUMAB
     Dosage: 200 MILLIGRAM
     Dates: start: 20251105, end: 20251112
  5. DOCETAXEL [Suspect]
     Active Substance: DOCETAXEL
     Indication: Nonkeratinising carcinoma of nasopharynx
     Dosage: 114 MILLIGRAM
     Dates: start: 20251105, end: 20251112
  6. DOCETAXEL [Suspect]
     Active Substance: DOCETAXEL
     Dosage: 114 MILLIGRAM
     Route: 041
     Dates: start: 20251105, end: 20251112
  7. DOCETAXEL [Suspect]
     Active Substance: DOCETAXEL
     Dosage: 114 MILLIGRAM
     Route: 041
     Dates: start: 20251105, end: 20251112
  8. DOCETAXEL [Suspect]
     Active Substance: DOCETAXEL
     Dosage: 114 MILLIGRAM
     Dates: start: 20251105, end: 20251112
  9. FLUOROURACIL [Suspect]
     Active Substance: FLUOROURACIL
     Indication: Nonkeratinising carcinoma of nasopharynx
     Dosage: 3.3 GRAM
     Dates: start: 20251106, end: 20251112
  10. FLUOROURACIL [Suspect]
     Active Substance: FLUOROURACIL
     Dosage: 3.3 GRAM
     Route: 041
     Dates: start: 20251106, end: 20251112
  11. FLUOROURACIL [Suspect]
     Active Substance: FLUOROURACIL
     Dosage: 3.3 GRAM
     Route: 041
     Dates: start: 20251106, end: 20251112
  12. FLUOROURACIL [Suspect]
     Active Substance: FLUOROURACIL
     Dosage: 3.3 GRAM
     Dates: start: 20251106, end: 20251112
  13. CISPLATIN [Suspect]
     Active Substance: CISPLATIN
     Indication: Nonkeratinising carcinoma of nasopharynx
     Dosage: 114 MILLIGRAM
     Dates: start: 20251106, end: 20251112
  14. CISPLATIN [Suspect]
     Active Substance: CISPLATIN
     Dosage: 114 MILLIGRAM
     Route: 041
     Dates: start: 20251106, end: 20251112
  15. CISPLATIN [Suspect]
     Active Substance: CISPLATIN
     Dosage: 114 MILLIGRAM
     Route: 041
     Dates: start: 20251106, end: 20251112
  16. CISPLATIN [Suspect]
     Active Substance: CISPLATIN
     Dosage: 114 MILLIGRAM
     Dates: start: 20251106, end: 20251112

REACTIONS (1)
  - Myelosuppression [Recovering/Resolving]

NARRATIVE: CASE EVENT DATE: 20251112
